FAERS Safety Report 13041630 (Version 1)
Quarter: 2016Q4

REPORT INFORMATION
  Report Type: Spontaneous
  Country: US (occurrence: US)
  Receive Date: 20161219
  Receipt Date: 20161219
  Transmission Date: 20170207
  Serious: Yes (Other)
  Sender: FDA-Public Use
  Company Number: US-ROCHE-1277390

PATIENT
  Age: 51 Year
  Sex: Female
  Weight: 66.51 kg

DRUGS (4)
  1. OXYCODONE [Concomitant]
     Active Substance: OXYCODONE
     Indication: PAIN
     Dosage: 5/325
     Route: 048
  2. ZELBORAF [Suspect]
     Active Substance: VEMURAFENIB
     Indication: MALIGNANT MELANOMA
     Dosage: IN MAR/APR 2013 AT THE MAXIMUM DOSE
     Route: 048
     Dates: start: 20130307, end: 20130416
  3. ZELBORAF [Suspect]
     Active Substance: VEMURAFENIB
     Dosage: IN APPROXIMATELY JUL/2013 AT THE LOWEST DOSE
     Route: 048
  4. ATENOLOL. [Concomitant]
     Active Substance: ATENOLOL
     Indication: HYPERTENSION
     Route: 048

REACTIONS (12)
  - Arthralgia [Recovered/Resolved]
  - Abasia [Unknown]
  - Benign neoplasm of skin [Unknown]
  - Rash [Recovered/Resolved]
  - Weight decreased [Unknown]
  - Joint stiffness [Unknown]
  - Pain [Unknown]
  - Arthralgia [Unknown]
  - Pain in extremity [Unknown]
  - Rash [Unknown]
  - Rash erythematous [Unknown]
  - Neoplasm [Unknown]

NARRATIVE: CASE EVENT DATE: 20130313
